FAERS Safety Report 24613113 (Version 3)
Quarter: 2024Q4

REPORT INFORMATION
  Report Type: Spontaneous
  Country: US (occurrence: US)
  Receive Date: 20241113
  Receipt Date: 20241219
  Transmission Date: 20250114
  Serious: No
  Sender: ROCHE
  Company Number: US-ROCHE-10000128059

PATIENT
  Age: 57 Year
  Sex: Female
  Weight: 79.83 kg

DRUGS (15)
  1. PERJETA [Suspect]
     Active Substance: PERTUZUMAB
     Indication: Breast mass
     Route: 042
     Dates: start: 20240926
  2. PERJETA [Suspect]
     Active Substance: PERTUZUMAB
     Indication: Invasive ductal breast carcinoma
  3. CARBOPLATIN [Concomitant]
     Active Substance: CARBOPLATIN
     Indication: Breast mass
     Route: 042
  4. CARBOPLATIN [Concomitant]
     Active Substance: CARBOPLATIN
     Indication: Invasive ductal breast carcinoma
  5. DOCETAXEL [Concomitant]
     Active Substance: DOCETAXEL
     Indication: Breast mass
     Route: 042
  6. DOCETAXEL [Concomitant]
     Active Substance: DOCETAXEL
     Indication: Invasive ductal breast carcinoma
  7. TRAZIMERA [Concomitant]
     Active Substance: TRASTUZUMAB-QYYP
     Indication: Breast mass
     Route: 042
  8. TRAZIMERA [Concomitant]
     Active Substance: TRASTUZUMAB-QYYP
     Indication: Invasive ductal breast carcinoma
  9. ALOXI [Concomitant]
     Active Substance: PALONOSETRON HYDROCHLORIDE
     Indication: Premedication
     Route: 042
  10. EMEND [Concomitant]
     Active Substance: APREPITANT
     Indication: Premedication
     Route: 042
  11. DEXAMETHASONE [Concomitant]
     Active Substance: DEXAMETHASONE
     Indication: Premedication
     Dosage: IV PUSH
     Route: 042
  12. DIPHENHYDRAMINE [Concomitant]
     Active Substance: DIPHENHYDRAMINE
     Indication: Premedication
     Dosage: IV PUSH
     Route: 042
  13. FULPHILA [Concomitant]
     Active Substance: PEGFILGRASTIM-JMDB
     Indication: Breast mass
     Dosage: GIVEN DAY AFTER CYCLE
     Route: 065
  14. FULPHILA [Concomitant]
     Active Substance: PEGFILGRASTIM-JMDB
     Indication: Invasive ductal breast carcinoma
  15. Sulphila [Concomitant]

REACTIONS (5)
  - Product dose omission issue [Unknown]
  - No adverse event [Unknown]
  - Device issue [Unknown]
  - Wrong technique in product usage process [Unknown]
  - Device defective [Unknown]

NARRATIVE: CASE EVENT DATE: 20241107
